FAERS Safety Report 5957535-X (Version None)
Quarter: 2008Q4

REPORT INFORMATION
  Report Type: 
  Country: None (occurrence: None)
  Receive Date: 20081114
  Receipt Date: 20081111
  Transmission Date: 20090506
  Serious: Yes (Other)
  Sender: FDA-Public Use
  Company Number: 2008JP005312

PATIENT
  Age: 77 Year
  Sex: Female

DRUGS (3)
  1. PROGRAF [Suspect]
     Indication: RHEUMATOID ARTHRITIS
     Dosage: ORAL
     Route: 048
  2. AZULFIDINE EN-TABS [Concomitant]
  3. CELCOX(CELECOXIB) [Concomitant]

REACTIONS (1)
  - BONE MARROW FAILURE [None]
